FAERS Safety Report 7581589-0 (Version None)
Quarter: 2011Q2

REPORT INFORMATION
  Report Type: 
  Country: None (occurrence: None)
  Receive Date: 20110629
  Receipt Date: 20110617
  Transmission Date: 20111010
  Serious: Yes (Hospitalization)
  Sender: FDA-Public Use
  Company Number: US-ELI_LILLY_AND_COMPANY-US201106002049

PATIENT
  Sex: Female

DRUGS (15)
  1. LYRICA [Concomitant]
     Dosage: 50 MG, QD
  2. CALCIUM CARBONATE [Concomitant]
     Dosage: 600 MG, BID
  3. LISINOPRIL [Concomitant]
     Dosage: 30 MG, QD
  4. NORVASC [Concomitant]
     Dosage: 5 MG, QD
  5. SPIRIVA [Concomitant]
     Dosage: 1 DF, QD
  6. MOBIC [Concomitant]
     Dosage: 15 MG, QD
  7. VENTOLIN                                /SCH/ [Concomitant]
     Dosage: UNK, PRN
  8. METFORMIN HCL [Concomitant]
     Dosage: 1000 MG, BID
  9. FORTEO [Suspect]
     Indication: OSTEOPOROSIS
     Dosage: 20 UG, QD
     Route: 065
     Dates: start: 20110501
  10. VITAMIN D [Concomitant]
     Dosage: 5000 IU, WEEKLY (1/W)
  11. PREDNISONE [Concomitant]
     Dosage: 2 MG, QD
  12. ACTOS [Concomitant]
     Dosage: 15 UG, QD
  13. FUROSEMIDE [Concomitant]
     Dosage: 20 MG, PRN
  14. PLAQUENIL [Concomitant]
     Dosage: 200 MG, BID
  15. POTASSIUM CHLORIDE [Concomitant]
     Dosage: 10 MEQ, PRN

REACTIONS (6)
  - THYROID CYST [None]
  - NAUSEA [None]
  - HEADACHE [None]
  - DIZZINESS [None]
  - NECK PAIN [None]
  - PAIN IN JAW [None]
